FAERS Safety Report 9316010 (Version 1)
Quarter: 2013Q2

REPORT INFORMATION
  Report Type: Spontaneous
  Country: US (occurrence: US)
  Receive Date: 20130530
  Receipt Date: 20130530
  Transmission Date: 20140414
  Serious: No
  Sender: FDA-Public Use
  Company Number: US-BIOGENIDEC-2013BI047793

PATIENT
  Sex: Female

DRUGS (6)
  1. AVONEX [Suspect]
     Indication: PRODUCT USED FOR UNKNOWN INDICATION
     Route: 030
  2. WELLBUTRIN [Concomitant]
  3. TOPIRAME [Concomitant]
  4. SUCRALFATE [Concomitant]
  5. OMEPRAZOLE [Concomitant]
  6. PROZAC [Concomitant]

REACTIONS (2)
  - Depression [Unknown]
  - Anxiety [Unknown]
